FAERS Safety Report 17636167 (Version 3)
Quarter: 2020Q2

REPORT INFORMATION
  Report Type: Report from Study
  Country: None (occurrence: CO)
  Receive Date: 20200407
  Receipt Date: 20200519
  Transmission Date: 20200713
  Serious: Yes (Hospitalization)
  Sender: FDA-Public Use
  Company Number: CO-ABBVIE-20K-036-3353559-00

PATIENT
  Age: 55 Year
  Sex: Female
  Weight: 60 kg

DRUGS (3)
  1. HUMIRA [Suspect]
     Active Substance: ADALIMUMAB
     Indication: RHEUMATOID ARTHRITIS
     Route: 058
     Dates: end: 20190812
  2. LOSARTAN. [Concomitant]
     Active Substance: LOSARTAN
     Indication: HYPERTENSION
     Route: 048
     Dates: start: 202003
  3. PREDNISOLONE. [Concomitant]
     Active Substance: PREDNISOLONE
     Indication: INFLUENZA
     Dosage: AT MORNING AND AT NIGHT
     Route: 048
     Dates: start: 20200302

REACTIONS (7)
  - Spinal pain [Not Recovered/Not Resolved]
  - Peripheral venous disease [Not Recovered/Not Resolved]
  - Sneezing [Not Recovered/Not Resolved]
  - Influenza [Not Recovered/Not Resolved]
  - Diabetes mellitus [Not Recovered/Not Resolved]
  - Decreased appetite [Not Recovered/Not Resolved]
  - Pain [Not Recovered/Not Resolved]

NARRATIVE: CASE EVENT DATE: 201905
